FAERS Safety Report 8524446-5 (Version None)
Quarter: 2012Q3

REPORT INFORMATION
  Report Type: 
  Country: None (occurrence: None)
  Receive Date: 20120720
  Receipt Date: 20120716
  Transmission Date: 20120928
  Serious: No
  Sender: FDA-Public Use
  Company Number: US-PFIZER INC-2012131671

PATIENT
  Sex: Female
  Weight: 68.027 kg

DRUGS (11)
  1. LITHIUM [Concomitant]
     Dosage: UNK
  2. FUZEON [Concomitant]
     Dosage: UNK
  3. THORAZINE [Concomitant]
     Indication: BIPOLAR DISORDER
     Dosage: 50 MG, DAILY AT BED TIME
  4. PROTONIX [Suspect]
     Indication: GASTROOESOPHAGEAL REFLUX DISEASE
     Dosage: 40 MG, 1X/DAY
     Route: 048
     Dates: start: 20070101
  5. LAMICTAL [Concomitant]
     Indication: BIPOLAR DISORDER
     Dosage: 100 MG, UNK
     Route: 048
  6. SYNTHROID [Concomitant]
     Dosage: UNK
  7. PROTONIX [Suspect]
     Dosage: 40 MG, DAILY
     Route: 048
     Dates: start: 20120601, end: 20120601
  8. LORAZEPAM [Concomitant]
     Indication: BIPOLAR DISORDER
     Dosage: 0.5 MG, DAILY AT BED TIME
  9. COMBIVENT [Concomitant]
     Indication: ASTHMA
     Dosage: UNK
     Dates: start: 20040101
  10. MOTRIN [Suspect]
     Dosage: UNK
     Dates: start: 20120601
  11. ADVAIR DISKUS 100/50 [Concomitant]
     Indication: ASTHMA
     Dosage: 500/50 MG, UNK
     Dates: start: 20040101

REACTIONS (4)
  - DRUG INEFFECTIVE [None]
  - CHEST DISCOMFORT [None]
  - PRODUCT QUALITY ISSUE [None]
  - CHEST PAIN [None]
